FAERS Safety Report 5585459-9 (Version None)
Quarter: 2008Q1

REPORT INFORMATION
  Report Type: 
  Country: None (occurrence: None)
  Receive Date: 20080109
  Receipt Date: 20080103
  Transmission Date: 20080703
  Serious: Yes (Hospitalization)
  Sender: FDA-Public Use
  Company Number: FR-ASTRAZENECA-2008CG00007

PATIENT
  Age: 28036 Day
  Sex: Female

DRUGS (6)
  1. INEXIUM [Suspect]
     Route: 048
     Dates: end: 20070301
  2. HYDREA [Suspect]
     Dosage: 3 TABLETS DAILY FIVE DAYS A WEEK AND 4 TABLETS DAILY ON SATURDAY+SUNDAY
     Route: 048
  3. MIRTAZAPINE [Concomitant]
  4. STILNOX [Concomitant]
  5. SULFARLEM [Concomitant]
  6. LEVOTHYROX [Concomitant]

REACTIONS (2)
  - ANAEMIA MACROCYTIC [None]
  - HEPATITIS [None]
